FAERS Safety Report 16033575 (Version 1)
Quarter: 2019Q1

REPORT INFORMATION
  Report Type: Spontaneous
  Country: US (occurrence: US)
  Receive Date: 20190305
  Receipt Date: 20190305
  Transmission Date: 20190418
  Serious: No
  Sender: FDA-Public Use
  Company Number: US-IMPAX LABORATORIES, LLC-2018-IPXL-02389

PATIENT
  Age: 65 Year
  Sex: Female
  Weight: 53 kg

DRUGS (3)
  1. RYTARY [Suspect]
     Active Substance: CARBIDOPA\LEVODOPA
     Indication: PARKINSON^S DISEASE
     Dosage: 23.75/95MG, 1 CAPSULE, DAILY
     Route: 048
     Dates: start: 201806, end: 201806
  2. RYTARY [Suspect]
     Active Substance: CARBIDOPA\LEVODOPA
     Dosage: 23.75/95 MG, 2 DF, DAILY
     Route: 048
     Dates: start: 201806, end: 201806
  3. RYTARY [Suspect]
     Active Substance: CARBIDOPA\LEVODOPA
     Dosage: 23.75/95 MG, 3 CAPSULE, DAILY
     Route: 048
     Dates: start: 201806, end: 20180626

REACTIONS (3)
  - Dry mouth [Recovering/Resolving]
  - Therapeutic response shortened [Recovering/Resolving]
  - Drug effect variable [Recovering/Resolving]

NARRATIVE: CASE EVENT DATE: 201806
